FAERS Safety Report 9094093 (Version 2)
Quarter: 2013Q2

REPORT INFORMATION
  Report Type: Spontaneous
  Country: US (occurrence: US)
  Receive Date: 20130219
  Receipt Date: 20130517
  Transmission Date: 20140414
  Serious: Yes (Hospitalization)
  Sender: FDA-Public Use
  Company Number: US-BAYER-2013-021063

PATIENT
  Age: 19 Year
  Sex: Female
  Weight: 65.76 kg

DRUGS (10)
  1. YASMIN [Suspect]
     Indication: ACNE
     Dosage: UNK
     Dates: start: 20070718, end: 20080605
  2. YASMIN [Suspect]
     Indication: MENSTRUAL CYCLE MANAGEMENT
  3. YAZ [Suspect]
     Dosage: UNK
     Dates: start: 200710
  4. ALBUTEROL [Concomitant]
  5. IBUPROFEN [Concomitant]
  6. ESOMEPRAZOLE [Concomitant]
  7. ANTI-ASTHMATICS [Concomitant]
     Dosage: UNK
     Dates: start: 1999, end: 2008
  8. ADVIL [Concomitant]
     Route: 048
  9. MINOCYCLINE [Concomitant]
     Dosage: UNK
     Route: 048
     Dates: start: 20070718, end: 2011
  10. EPIPEN [Concomitant]
     Indication: ANAPHYLACTIC REACTION
     Dosage: UNK
     Dates: start: 1992

REACTIONS (12)
  - Pulmonary embolism [None]
  - Pulmonary infarction [None]
  - Pulmonary embolism [None]
  - Deep vein thrombosis [None]
  - Chest pain [None]
  - Dyspnoea [None]
  - Injury [None]
  - General physical health deterioration [None]
  - Anxiety [None]
  - Emotional distress [None]
  - Pain [None]
  - Pain [None]
